FAERS Safety Report 15083011 (Version 2)
Quarter: 2018Q3

REPORT INFORMATION
  Report Type: Spontaneous
  Country: RO (occurrence: RO)
  Receive Date: 20180628
  Receipt Date: 20180717
  Transmission Date: 20181010
  Serious: Yes (Hospitalization)
  Sender: FDA-Public Use
  Company Number: RO-PFIZER INC-2018174464

PATIENT
  Age: 78 Year
  Sex: Female
  Weight: 48 kg

DRUGS (5)
  1. CONTROLOC [Concomitant]
     Active Substance: PANTOPRAZOLE SODIUM
     Dosage: 20 MG, 1X/DAY (MORNING)
  2. PERITOL [Concomitant]
     Dosage: 4 MG, 1X/DAY, (EVENING)
  3. SUTENT [Suspect]
     Active Substance: SUNITINIB MALATE
     Indication: METASTATIC RENAL CELL CARCINOMA
     Dosage: 50 MG, CYCLIC, 4 WEEKS ON WITH 2 WEEKS OFF
     Dates: start: 20170630, end: 20180605
  4. INDAPAMID [Concomitant]
     Active Substance: INDAPAMIDE
     Dosage: UNK UNK, 1X/DAY, MORNING
  5. TRAMADOL. [Concomitant]
     Active Substance: TRAMADOL
     Dosage: 50 MG, 2X/DAY (MORNING AND EVENING)

REACTIONS (4)
  - Movement disorder [Recovered/Resolved]
  - Aphthous ulcer [Recovered/Resolved]
  - Hypertension [Recovered/Resolved]
  - Palmar-plantar erythrodysaesthesia syndrome [Recovered/Resolved]

NARRATIVE: CASE EVENT DATE: 20180418
